FAERS Safety Report 5138636-5 (Version None)
Quarter: 2006Q4

REPORT INFORMATION
  Report Type: 
  Country: None (occurrence: None)
  Receive Date: 20061030
  Receipt Date: 20061019
  Transmission Date: 20070319
  Serious: Yes (Hospitalization)
  Sender: FDA-Public Use
  Company Number: FR-GLAXOSMITHKLINE-B0443971A

PATIENT
  Age: 62 Year
  Sex: Female

DRUGS (11)
  1. DEROXAT [Suspect]
     Dosage: 20MG PER DAY
     Route: 048
     Dates: start: 20060803
  2. OFLOCET [Suspect]
     Indication: ESCHERICHIA SEPSIS
     Dosage: 200MG TWICE PER DAY
     Route: 048
     Dates: start: 20060910, end: 20060926
  3. ROCEPHIN [Suspect]
     Indication: ESCHERICHIA SEPSIS
     Dosage: 1G TWICE PER DAY
     Route: 042
     Dates: start: 20060910
  4. ORACILLINE [Suspect]
     Indication: SPLENECTOMY
     Dosage: 1TAB TWICE PER DAY
     Route: 048
     Dates: start: 20060517
  5. COUMADIN [Suspect]
     Indication: PORTAL VEIN THROMBOSIS
     Dosage: 4MG PER DAY
     Route: 048
     Dates: start: 20060601, end: 20060927
  6. AUGMENTIN '125' [Concomitant]
     Indication: ESCHERICHIA SEPSIS
     Route: 065
     Dates: start: 20060801, end: 20060801
  7. RITUXIMAB [Concomitant]
     Indication: NON-HODGKIN'S LYMPHOMA
     Dates: start: 20060824
  8. ARACYTINE [Concomitant]
     Indication: NON-HODGKIN'S LYMPHOMA
     Dates: start: 20060824
  9. DEXAMETHASONE [Concomitant]
     Indication: NON-HODGKIN'S LYMPHOMA
     Dates: start: 20060824
  10. HARPAGOPHYTUM [Concomitant]
  11. CISPLATIN [Concomitant]
     Indication: NON-HODGKIN'S LYMPHOMA
     Dates: start: 20060824

REACTIONS (8)
  - ABDOMINAL PAIN [None]
  - ACCIDENTAL OVERDOSE [None]
  - ANAEMIA [None]
  - DIARRHOEA [None]
  - DRUG INTERACTION [None]
  - GASTROINTESTINAL HAEMORRHAGE [None]
  - INTERNATIONAL NORMALISED RATIO INCREASED [None]
  - NAUSEA [None]
